FAERS Safety Report 16476781 (Version 1)
Quarter: 2019Q2

REPORT INFORMATION
  Report Type: Spontaneous
  Country: AR (occurrence: AR)
  Receive Date: 20190626
  Receipt Date: 20190626
  Transmission Date: 20190711
  Serious: Yes (Hospitalization, Other)
  Sender: FDA-Public Use
  Company Number: AR-AMGEN-ARGSP2019082681

PATIENT
  Age: 61 Year
  Sex: Female

DRUGS (4)
  1. DELTISONE [Concomitant]
     Dosage: 4 MG, DAILY
  2. MELOXICAM. [Concomitant]
     Active Substance: MELOXICAM
     Dosage: 15 MG, WEEKLY
  3. METHOTREXATE. [Concomitant]
     Active Substance: METHOTREXATE
     Dosage: 15 MG, WEEKLY
  4. ENBREL [Suspect]
     Active Substance: ETANERCEPT
     Indication: RHEUMATOID ARTHRITIS
     Dosage: 50 MILLIGRAM, QWK
     Route: 065
     Dates: start: 20140303, end: 201902

REACTIONS (5)
  - Diarrhoea [Recovered/Resolved]
  - Vomiting [Recovered/Resolved]
  - Gastric infection [Recovered/Resolved]
  - Dehydration [Recovered/Resolved]
  - Salmonellosis [Recovered/Resolved]

NARRATIVE: CASE EVENT DATE: 201902
